FAERS Safety Report 5877725-4 (Version None)
Quarter: 2008Q3

REPORT INFORMATION
  Report Type: 
  Country: None (occurrence: None)
  Receive Date: 20080911
  Receipt Date: 20080902
  Transmission Date: 20090109
  Serious: Yes (Other)
  Sender: FDA-Public Use
  Company Number: JP-JNJFOC-20080901411

PATIENT

DRUGS (3)
  1. DUROTEP [Suspect]
     Indication: DRUG USE FOR UNKNOWN INDICATION
     Route: 062
  2. OXYCODONE HCL [Concomitant]
  3. HIRNAMIN [Concomitant]
     Route: 048

REACTIONS (2)
  - DELIRIUM [None]
  - SOMNOLENCE [None]
